FAERS Safety Report 10098440 (Version 1)
Quarter: 2014Q2

REPORT INFORMATION
  Report Type: Spontaneous
  Country: US (occurrence: US)
  Receive Date: 20140423
  Receipt Date: 20140423
  Transmission Date: 20141212
  Serious: No
  Sender: FDA-Public Use
  Company Number: US-PFIZER INC-2014111078

PATIENT
  Age: 71 Year
  Sex: Female

DRUGS (11)
  1. CELEBREX [Suspect]
     Dosage: UNK
  2. CELECOXIB [Suspect]
     Dosage: UNK
  3. CLINDAMYCIN HCL [Suspect]
     Dosage: UNK
  4. MINOCYCLINE [Suspect]
     Dosage: UNK
  5. CATAPRES-TTS [Suspect]
     Dosage: UNK
  6. CLONIDINE [Suspect]
     Dosage: UNK
  7. GENTAMICIN SULFATE [Suspect]
     Dosage: UNK
  8. HYDRALAZINE [Suspect]
     Dosage: UNK
  9. KEFLEX [Suspect]
     Dosage: UNK
  10. RIFAMPIN [Suspect]
     Dosage: UNK
  11. SULFAMETHOXAZOLE W/TRIMETHOPRIM [Suspect]
     Dosage: UNK

REACTIONS (1)
  - Drug hypersensitivity [Unknown]
